FAERS Safety Report 8757992 (Version 1)
Quarter: 2012Q4

REPORT INFORMATION
  Report Type: 
  Country: US (occurrence: US)
  Receive Date: 20120902
  Receipt Date: 20120902
  Transmission Date: 20130627
  Serious: Yes (Other)
  Sender: FDA-Public Use
  Company Number: US-AMGEN-USASP2012053038

PATIENT
  Age: 66 Year
  Sex: Female

DRUGS (1)
  1. ENBREL [Suspect]
     Indication: PRODUCT USED FOR UNKNOWN INDICATION
     Dosage: 50 mg, qwk
     Route: 058
     Dates: start: 20040515, end: 20060101

REACTIONS (3)
  - Portal vein thrombosis [Recovered/Resolved]
  - Hepatic cirrhosis [Recovered/Resolved]
  - Psoriasis [Not Recovered/Not Resolved]
